FAERS Safety Report 19656324 (Version 1)
Quarter: 2021Q3

REPORT INFORMATION
  Report Type: Report from Study
  Country: US (occurrence: US)
  Receive Date: 20210804
  Receipt Date: 20210804
  Transmission Date: 20211014
  Serious: Yes (Death, Hospitalization)
  Sender: FDA-Public Use
  Company Number: US-INSMED, INC.-2021-07836-US

PATIENT
  Age: 91 Year
  Sex: Female

DRUGS (1)
  1. ARIKAYCE [Suspect]
     Active Substance: AMIKACIN
     Indication: PRODUCT USED FOR UNKNOWN INDICATION
     Dosage: 590 MILLIGRAM, QD
     Route: 055
     Dates: start: 20191015

REACTIONS (9)
  - Asthenia [Unknown]
  - Urinary tract infection [Unknown]
  - Drug dose omission by device [Unknown]
  - Choking [Unknown]
  - Death [Fatal]
  - General physical health deterioration [Unknown]
  - Device issue [Unknown]
  - Device use issue [Unknown]
  - Device connection issue [Unknown]

NARRATIVE: CASE EVENT DATE: 20210209
